FAERS Safety Report 7984712-9 (Version None)
Quarter: 2011Q4

REPORT INFORMATION
  Report Type: 
  Country: None (occurrence: None)
  Receive Date: 20111216
  Receipt Date: 20111206
  Transmission Date: 20120403
  Serious: Yes (Hospitalization)
  Sender: FDA-Public Use
  Company Number: NL-AMGEN-NLDSP2011060580

PATIENT
  Age: 73 Year
  Sex: Female

DRUGS (13)
  1. PREDNISONE [Concomitant]
     Dosage: UNK
  2. FOLIC ACID [Concomitant]
     Dosage: UNK
  3. METHOTREXATE SODIUM [Suspect]
     Dosage: UNK
  4. PANTOPRAZOLE [Concomitant]
     Dosage: UNK
  5. MAYCOR NITROSPRAY [Concomitant]
     Dosage: UNK
  6. CLOPIDOGREL [Concomitant]
     Dosage: UNK
  7. ACTONEL [Concomitant]
     Dosage: UNK
  8. LOSARTAN POTASSIUM [Concomitant]
     Dosage: UNK
  9. SIMVASTATIN [Concomitant]
     Dosage: UNK
  10. ASCAL                              /00002702/ [Concomitant]
     Dosage: UNK
  11. CALCIUM CARBONATE [Concomitant]
     Dosage: UNK
  12. ENBREL [Suspect]
     Indication: RHEUMATOID ARTHRITIS
     Dosage: 50 MG, WEEKLY
     Dates: start: 20111031
  13. TRAMADOL HCL [Concomitant]
     Dosage: UNK

REACTIONS (7)
  - HYPERHIDROSIS [None]
  - HEADACHE [None]
  - URINARY TRACT INFECTION [None]
  - HEPATIC FUNCTION ABNORMAL [None]
  - ERYTHEMA [None]
  - FEELING HOT [None]
  - FIBROMYALGIA [None]
